FAERS Safety Report 20166910 (Version 5)
Quarter: 2022Q1

REPORT INFORMATION
  Report Type: Spontaneous
  Country: US (occurrence: US)
  Receive Date: 20211209
  Receipt Date: 20220314
  Transmission Date: 20220423
  Serious: Yes (Other)
  Sender: FDA-Public Use
  Company Number: US-PFIZER INC-202101682972

PATIENT
  Age: 54 Year
  Sex: Female
  Weight: 72.574 kg

DRUGS (6)
  1. ZOLOFT [Suspect]
     Active Substance: SERTRALINE HYDROCHLORIDE
     Indication: Major depression
     Dosage: 50 MG
     Dates: start: 2001
  2. ZOLOFT [Suspect]
     Active Substance: SERTRALINE HYDROCHLORIDE
     Indication: Post-traumatic stress disorder
     Dosage: 200 MG
     Dates: start: 2003
  3. ZOLOFT [Suspect]
     Active Substance: SERTRALINE HYDROCHLORIDE
     Indication: Glaucoma
     Dosage: 150 MG
     Dates: start: 2004
  4. ZOLOFT [Suspect]
     Active Substance: SERTRALINE HYDROCHLORIDE
     Indication: Depression
     Dosage: 100 MG, 1X/DAY (ONCE EVERY NIGHT)
     Route: 048
     Dates: start: 2004
  5. ZOLOFT [Suspect]
     Active Substance: SERTRALINE HYDROCHLORIDE
     Dosage: 100 MG
     Route: 048
     Dates: start: 2003
  6. ZOLOFT [Suspect]
     Active Substance: SERTRALINE HYDROCHLORIDE
     Dosage: 100 MG, 1X/DAY, [ZOLOFT TABLETS 100 MG, ONCE EVERY NIGHT STARTED ON 2001]
     Route: 048
     Dates: start: 2001

REACTIONS (11)
  - Angle closure glaucoma [Not Recovered/Not Resolved]
  - Hypothyroidism [Unknown]
  - Cataract nuclear [Unknown]
  - Lacrimation decreased [Unknown]
  - Dry eye [Unknown]
  - Intentional dose omission [Unknown]
  - Withdrawal syndrome [Not Recovered/Not Resolved]
  - Electric shock sensation [Not Recovered/Not Resolved]
  - Headache [Not Recovered/Not Resolved]
  - Cold sweat [Not Recovered/Not Resolved]
  - Tremor [Unknown]

NARRATIVE: CASE EVENT DATE: 20050101
